FAERS Safety Report 4361903-X (Version None)
Quarter: 2004Q2

REPORT INFORMATION
  Report Type: 
  Country: None (occurrence: None)
  Receive Date: 20040521
  Receipt Date: 20030721
  Transmission Date: 20050107
  Serious: No
  Sender: FDA-Public Use
  Company Number: US-GLAXOSMITHKLINE-A0418610A

PATIENT
  Sex: Male

DRUGS (1)
  1. THORAZINE [Suspect]
     Indication: ILL-DEFINED DISORDER
     Route: 048
     Dates: start: 19710101, end: 19780101

REACTIONS (1)
  - LOSS OF LIBIDO [None]
